FAERS Safety Report 5490730-5 (Version None)
Quarter: 2007Q4

REPORT INFORMATION
  Report Type: 
  Country: None (occurrence: None)
  Receive Date: 20071019
  Receipt Date: 20071012
  Transmission Date: 20080405
  Serious: Yes (Hospitalization)
  Sender: FDA-Public Use
  Company Number: B0487079A

PATIENT
  Age: 76 Year
  Sex: Female

DRUGS (2)
  1. VALTREX [Suspect]
     Indication: HERPES ZOSTER
     Dosage: 1000MG THREE TIMES PER DAY
     Route: 048
     Dates: start: 20070907, end: 20070912
  2. VOLTAREN [Concomitant]
     Route: 065

REACTIONS (4)
  - HEADACHE [None]
  - NAUSEA [None]
  - OVERDOSE [None]
  - RENAL FAILURE ACUTE [None]
